FAERS Safety Report 9783747 (Version 1)
Quarter: 2013Q4

REPORT INFORMATION
  Report Type: Spontaneous
  Country: GB (occurrence: None)
  Receive Date: 20131223
  Receipt Date: 20131223
  Transmission Date: 20140711
  Serious: Yes (Hospitalization)
  Sender: FDA-Public Use
  Company Number: 2023691

PATIENT
  Age: 35 Year
  Sex: Female
  Weight: 60.45 kg

DRUGS (3)
  1. DOCETAXEL [Suspect]
     Indication: BREAST CANCER METASTATIC
     Route: 042
     Dates: start: 20120927
  2. TRASTUZUMAB [Suspect]
     Route: 042
     Dates: start: 20120927
  3. PERTUZUMAB [Concomitant]

REACTIONS (1)
  - Neutropenic sepsis [None]
